FAERS Safety Report 13420066 (Version 2)
Quarter: 2017Q3

REPORT INFORMATION
  Report Type: Spontaneous
  Country: US (occurrence: US)
  Receive Date: 20170407
  Receipt Date: 20170703
  Transmission Date: 20171127
  Serious: No
  Sender: FDA-Public Use
  Company Number: US-JNJFOC-20170313575

PATIENT
  Age: 52 Year
  Sex: Female
  Weight: 58.97 kg

DRUGS (1)
  1. STELARA [Suspect]
     Active Substance: USTEKINUMAB
     Indication: PSORIATIC ARTHROPATHY
     Route: 058

REACTIONS (4)
  - Underdose [Not Recovered/Not Resolved]
  - Bone pain [Not Recovered/Not Resolved]
  - Syringe issue [Unknown]
  - Agitation [Unknown]

NARRATIVE: CASE EVENT DATE: 20170312
